FAERS Safety Report 21790314 (Version 2)
Quarter: 2023Q1

REPORT INFORMATION
  Report Type: Spontaneous
  Country: CZ (occurrence: CZ)
  Receive Date: 20221228
  Receipt Date: 20230110
  Transmission Date: 20230418
  Serious: Yes (Other)
  Sender: FDA-Public Use
  Company Number: CZ-002147023-NVSC2022CZ279038

PATIENT
  Sex: Female

DRUGS (2)
  1. BEOVU [Suspect]
     Active Substance: BROLUCIZUMAB-DBLL
     Indication: Neovascular age-related macular degeneration
     Dosage: UNK
     Route: 031
     Dates: start: 20220812
  2. BEOVU [Suspect]
     Active Substance: BROLUCIZUMAB-DBLL
     Dosage: UNK
     Route: 031
     Dates: start: 20220913

REACTIONS (11)
  - Papilloedema [Recovered/Resolved]
  - Retinal occlusive vasculitis [Not Recovered/Not Resolved]
  - Keratic precipitates [Recovered/Resolved]
  - Vitritis [Recovered/Resolved]
  - Detachment of retinal pigment epithelium [Unknown]
  - Uveitis [Unknown]
  - Choroidal neovascularisation [Unknown]
  - Visual acuity reduced [Unknown]
  - Vitreous floaters [Recovered/Resolved]
  - Periorbital swelling [Recovered/Resolved]
  - Subretinal hyperreflective exudation [Unknown]

NARRATIVE: CASE EVENT DATE: 20220801
